FAERS Safety Report 5470753-2 (Version None)
Quarter: 2007Q3

REPORT INFORMATION
  Report Type: 
  Country: None (occurrence: None)
  Receive Date: 20070928
  Receipt Date: 20070918
  Transmission Date: 20080115
  Serious: Yes (Death, Hospitalization)
  Sender: FDA-Public Use
  Company Number: US-AVENTIS-200717287GDDC

PATIENT
  Age: 71 Year
  Sex: Male
  Weight: 71.21 kg

DRUGS (16)
  1. TAXOTERE [Suspect]
     Indication: NON-SMALL CELL LUNG CANCER
     Route: 042
     Dates: start: 20070730, end: 20070730
  2. CARBOPLATIN [Suspect]
     Indication: NON-SMALL CELL LUNG CANCER
     Route: 042
     Dates: start: 20070625, end: 20070730
  3. RADIOTHERAPY [Suspect]
     Indication: NON-SMALL CELL LUNG CANCER
     Dosage: DOSE: UNK
     Dates: start: 20070620, end: 20070803
  4. GLUCOPHAGE [Concomitant]
     Dosage: DOSE: UNK
  5. QUINIDINE SULFATE [Concomitant]
     Dosage: DOSE: UNK
  6. ZOCOR [Concomitant]
     Dosage: DOSE: UNK
  7. DRUGS USED IN NICOTINE DEPENDENCE [Concomitant]
     Dosage: DOSE: UNK
  8. COUMADIN [Concomitant]
     Dosage: DOSE: UNK
  9. LASIX [Concomitant]
     Dosage: DOSE: UNK
  10. LEVAQUIN [Concomitant]
     Dosage: DOSE: UNK
  11. ZAROXOLYN [Concomitant]
     Dosage: DOSE: UNK
  12. SINGULAIR [Concomitant]
     Dosage: DOSE: UNK
  13. MYCELEX [Concomitant]
     Dosage: DOSE: UNK
  14. CARDIZEM [Concomitant]
     Dosage: DOSE: UNK
  15. ZETIA [Concomitant]
     Dosage: DOSE: UNK
  16. DIFLUCAN [Concomitant]
     Dosage: DOSE: UNK

REACTIONS (5)
  - ASTHENIA [None]
  - DEHYDRATION [None]
  - DIARRHOEA [None]
  - RESPIRATORY FAILURE [None]
  - SYNCOPE [None]
